FAERS Safety Report 18492360 (Version 3)
Quarter: 2020Q4

REPORT INFORMATION
  Report Type: Spontaneous
  Country: JP (occurrence: JP)
  Receive Date: 20201111
  Receipt Date: 20201202
  Transmission Date: 20210114
  Serious: Yes (Hospitalization, Other)
  Sender: FDA-Public Use
  Company Number: JP-EISAI MEDICAL RESEARCH-EC-2020-083437

PATIENT
  Age: 77 Year
  Sex: Male
  Weight: 70 kg

DRUGS (8)
  1. ZOLPIDEM TARTRATE. [Concomitant]
     Active Substance: ZOLPIDEM TARTRATE
     Indication: PRODUCT USED FOR UNKNOWN INDICATION
     Dosage: DOSE AND FREQUENCY NOT PROVIDED
     Dates: start: 20201002
  2. LENVIMA [Suspect]
     Active Substance: LENVATINIB
     Indication: HEPATOCELLULAR CARCINOMA
     Route: 048
     Dates: start: 20190109, end: 20190205
  3. AMLODIPINE [Concomitant]
     Active Substance: AMLODIPINE BESYLATE
     Indication: PRODUCT USED FOR UNKNOWN INDICATION
     Dosage: DOSE AND FREQUENCY NOT PROVIDED
  4. LENVIMA [Suspect]
     Active Substance: LENVATINIB
     Route: 048
     Dates: start: 20200911, end: 20201026
  5. LOXOPROFEN [Concomitant]
     Active Substance: LOXOPROFEN
     Indication: PRODUCT USED FOR UNKNOWN INDICATION
     Dosage: DOSE AND FREQUENCY NOT PROVIDED
     Dates: start: 20201016
  6. LENVIMA [Suspect]
     Active Substance: LENVATINIB
     Route: 048
     Dates: start: 20190206, end: 20190319
  7. SERTRALINE [Concomitant]
     Active Substance: SERTRALINE HYDROCHLORIDE
     Indication: PRODUCT USED FOR UNKNOWN INDICATION
     Dosage: DOSE AND FREQUENCY NOT PROVIDED
     Dates: start: 20201002
  8. FAMOTIDINE. [Concomitant]
     Active Substance: FAMOTIDINE
     Indication: PRODUCT USED FOR UNKNOWN INDICATION
     Dosage: DOSE AND FREQUENCY NOT PROVIDED
     Dates: start: 20200911, end: 2020

REACTIONS (2)
  - Osteomyelitis [Recovering/Resolving]
  - Liver carcinoma ruptured [Recovering/Resolving]

NARRATIVE: CASE EVENT DATE: 20201026
